FAERS Safety Report 5282215-6 (Version None)
Quarter: 2007Q1

REPORT INFORMATION
  Report Type: 
  Country: None (occurrence: None)
  Receive Date: 20070330
  Receipt Date: 20070319
  Transmission Date: 20070707
  Serious: Yes (Hospitalization)
  Sender: FDA-Public Use
  Company Number: FR-PFIZER INC-2007021415

PATIENT
  Age: 32 Year
  Sex: Female

DRUGS (2)
  1. SOLU-MEDROL [Suspect]
     Indication: MULTIPLE SCLEROSIS
     Dosage: TEXT:500MG / 8ML; 1G
     Route: 042
     Dates: start: 20070130, end: 20070130
  2. REBIF [Concomitant]

REACTIONS (2)
  - ANAPHYLACTIC SHOCK [None]
  - ANGIOEDEMA [None]
